FAERS Safety Report 5469742-3 (Version None)
Quarter: 2007Q3

REPORT INFORMATION
  Report Type: 
  Country: None (occurrence: None)
  Receive Date: 20070926
  Receipt Date: 20070926
  Transmission Date: 20080115
  Serious: Yes (Hospitalization)
  Sender: FDA-Public Use
  Company Number: None

PATIENT
  Sex: Male
  Weight: 75.9 kg

DRUGS (5)
  1. TEMOZOLOMIDE [Suspect]
     Dosage: 1260 MG
  2. TEMOZOLOMIDE [Suspect]
  3. DILANTIN [Concomitant]
  4. KEPPRA [Concomitant]
  5. DECADRON [Concomitant]

REACTIONS (2)
  - CONVULSION [None]
  - DIABETIC HYPEROSMOLAR COMA [None]
